FAERS Safety Report 12408554 (Version 1)
Quarter: 2016Q2

REPORT INFORMATION
  Report Type: Report from Study
  Country: US (occurrence: US)
  Receive Date: 20160526
  Receipt Date: 20160526
  Transmission Date: 20160815
  Serious: No
  Sender: FDA-Public Use
  Company Number: GXBR2015US002869

PATIENT
  Sex: Male

DRUGS (3)
  1. SOMATROPIN [Suspect]
     Active Substance: SOMATROPIN
     Dosage: 0.048 MG/KG, QD
     Route: 058
     Dates: end: 20150604
  2. SOMATROPIN [Suspect]
     Active Substance: SOMATROPIN
     Indication: GROWTH RETARDATION
     Dosage: 0.041 MG/KG, QD
     Route: 058
     Dates: start: 20120814
  3. SOMATROPIN [Suspect]
     Active Substance: SOMATROPIN
     Dosage: 0.043 MG/KG, QD
     Route: 058

REACTIONS (4)
  - Arthralgia [Unknown]
  - Pain [Recovered/Resolved]
  - Headache [Recovered/Resolved]
  - Abdominal pain [Recovered/Resolved]

NARRATIVE: CASE EVENT DATE: 20121121
